FAERS Safety Report 21618589 (Version 1)
Quarter: 2022Q4

REPORT INFORMATION
  Report Type: Spontaneous
  Country: BR (occurrence: BR)
  Receive Date: 20221119
  Receipt Date: 20221119
  Transmission Date: 20230113
  Serious: Yes (Hospitalization, Other)
  Sender: FDA-Public Use
  Company Number: BR-Accord-287080

PATIENT
  Age: 52 Year
  Sex: Male
  Weight: 50.80 kg

DRUGS (4)
  1. PACLITAXEL [Suspect]
     Active Substance: PACLITAXEL
     Indication: Neoplasm malignant
     Route: 042
     Dates: start: 20221002, end: 20221002
  2. CARBOPLATIN [Concomitant]
     Active Substance: CARBOPLATIN
     Indication: Neoplasm malignant
     Dosage: SECONDARY AND NON-SPECIFIED MALIGNANT NEOPLASIA OF AXILLARY LYMPH NODES AND UPPER LIMBS
     Route: 042
  3. DEXTROSE [Concomitant]
     Active Substance: DEXTROSE
     Dosage: STRENGTH: 5 %
     Route: 042
     Dates: start: 20221002, end: 20221002
  4. SALINE [Concomitant]
     Active Substance: SODIUM CHLORIDE
     Dosage: STRENGTH: 0.9%
     Route: 042
     Dates: start: 20221002, end: 20221002

REACTIONS (4)
  - Dyspnoea [Recovered/Resolved]
  - Hypoxia [Recovered/Resolved]
  - Bradycardia [Recovered/Resolved]
  - Off label use [Unknown]

NARRATIVE: CASE EVENT DATE: 20221002
